FAERS Safety Report 6874961-5 (Version None)
Quarter: 2010Q3

REPORT INFORMATION
  Report Type: 
  Country: None (occurrence: None)
  Receive Date: 20100723
  Receipt Date: 20100714
  Transmission Date: 20110219
  Serious: Yes (Hospitalization)
  Sender: FDA-Public Use
  Company Number: 010219

PATIENT
  Weight: 66.4 kg

DRUGS (13)
  1. PLETAL [Suspect]
     Route: 048
  2. CALBLOCK (AZELNIDIPINE) [Concomitant]
  3. WARFARIN (WARFARIN POTASSIUM) [Concomitant]
  4. DIART (AZOSEMIDE) [Concomitant]
  5. DIOVAN [Concomitant]
  6. ENALAPRIL MALEATE [Concomitant]
  7. TALION (BEPOTASTINE BESILATE) [Concomitant]
  8. ZONISAMIDE [Concomitant]
  9. MUCODYNE (CARBOCISTEINE) [Concomitant]
  10. MUCOSAL (AMBROXOL HYDROCHLORIDE) [Concomitant]
  11. DASEN (SERRAPEPTASE) [Concomitant]
  12. BIOFERMIN (LACTOMIN) [Concomitant]
  13. LOPERAMIDE HCL [Concomitant]

REACTIONS (4)
  - NAIL DISCOLOURATION [None]
  - OEDEMA PERIPHERAL [None]
  - PLEURAL EFFUSION [None]
  - WEIGHT DECREASED [None]
